FAERS Safety Report 21098660 (Version 1)
Quarter: 2022Q3

REPORT INFORMATION
  Report Type: Spontaneous
  Country: US (occurrence: US)
  Receive Date: 20220719
  Receipt Date: 20220719
  Transmission Date: 20221027
  Serious: No
  Sender: FDA-Public Use
  Company Number: US-UROGEN PHARMA LTD.-2022-UGN-000058

PATIENT

DRUGS (6)
  1. JELMYTO [Suspect]
     Active Substance: MITOMYCIN
     Indication: Transitional cell cancer of the renal pelvis and ureter
     Dosage: 32 IU INTERNATIONAL UNIT(S), ONE TIME PER WEEK (INSTILLATION)
     Dates: start: 20220426, end: 20220426
  2. JELMYTO [Suspect]
     Active Substance: MITOMYCIN
     Dosage: 32 IU INTERNATIONAL UNIT(S), ONE TIME PER WEEK (INSTILLATION)
     Dates: start: 20220503, end: 20220503
  3. JELMYTO [Suspect]
     Active Substance: MITOMYCIN
     Dosage: 32 IU INTERNATIONAL UNIT(S), ONE TIME PER WEEK (INSTILLATION)
     Dates: start: 20220510, end: 20220510
  4. JELMYTO [Suspect]
     Active Substance: MITOMYCIN
     Dosage: 32 IU INTERNATIONAL UNIT(S), ONE TIME PER WEEK (INSTILLATION)
     Dates: start: 20220517, end: 20220517
  5. JELMYTO [Suspect]
     Active Substance: MITOMYCIN
     Dosage: 32 IU INTERNATIONAL UNIT(S), ONE TIME PER WEEK (INSTILLATION)
     Dates: start: 20220524, end: 20220524
  6. JELMYTO [Suspect]
     Active Substance: MITOMYCIN
     Dosage: 32 IU INTERNATIONAL UNIT(S), ONE TIME PER WEEK (INSTILLATION)
     Dates: start: 20220531, end: 20220531

REACTIONS (1)
  - Rash [Recovered/Resolved]

NARRATIVE: CASE EVENT DATE: 20220520
